FAERS Safety Report 16858844 (Version 1)
Quarter: 2019Q3

REPORT INFORMATION
  Report Type: Spontaneous
  Country: US (occurrence: US)
  Receive Date: 20190926
  Receipt Date: 20190926
  Transmission Date: 20191005
  Serious: Yes (Life-Threatening, Hospitalization, Other)
  Sender: FDA-Public Use
  Company Number: US-PFIZER INC-2019410525

PATIENT
  Age: 49 Year
  Sex: Female
  Weight: 72.57 kg

DRUGS (5)
  1. XANAX [Suspect]
     Active Substance: ALPRAZOLAM
     Indication: PANIC DISORDER
     Dosage: 8 MG, DAILY
     Route: 048
  2. SYMBICORT [Concomitant]
     Active Substance: BUDESONIDE\FORMOTEROL FUMARATE DIHYDRATE
     Indication: ASTHMA
     Dosage: 320 UG, 2X/DAY [ 2 PUFFS OF 160 MCG TWICE A DAY INHALED.]
     Route: 055
     Dates: start: 2014
  3. XANAX [Suspect]
     Active Substance: ALPRAZOLAM
     Dosage: 6 MG, DAILY
     Route: 048
     Dates: start: 2001
  4. ALPRAZOLAM. [Suspect]
     Active Substance: ALPRAZOLAM
     Indication: PANIC DISORDER
     Dosage: 2 MG, 3X/DAY
     Route: 048
     Dates: start: 1999
  5. TYLENOL [Concomitant]
     Active Substance: ACETAMINOPHEN
     Indication: HEADACHE
     Dosage: 2 DF, AS NEEDED
     Route: 048

REACTIONS (11)
  - Intentional product misuse [Unknown]
  - Tachyarrhythmia [Not Recovered/Not Resolved]
  - Product dose omission [Not Recovered/Not Resolved]
  - Tremor [Not Recovered/Not Resolved]
  - Hyperhidrosis [Not Recovered/Not Resolved]
  - Nervousness [Unknown]
  - Agitation [Unknown]
  - Hypersensitivity [Unknown]
  - Feeling abnormal [Not Recovered/Not Resolved]
  - Asthma [Not Recovered/Not Resolved]
  - Anxiety [Unknown]

NARRATIVE: CASE EVENT DATE: 2000
